FAERS Safety Report 5975506-4 (Version None)
Quarter: 2008Q4

REPORT INFORMATION
  Report Type: 
  Country: None (occurrence: None)
  Receive Date: 20081202
  Receipt Date: 20081126
  Transmission Date: 20090506
  Serious: Yes (Congenital Anomaly, Other)
  Sender: FDA-Public Use
  Company Number: GB-TEVA-159149ISR

PATIENT
  Age: 4 Year

DRUGS (3)
  1. DIAZEPAM [Suspect]
     Route: 064
  2. BUTANE [Suspect]
     Route: 064
  3. METHADONE HCL [Suspect]
     Route: 064

REACTIONS (5)
  - DEVELOPMENTAL DELAY [None]
  - NYSTAGMUS [None]
  - POSTURE ABNORMAL [None]
  - STRABISMUS [None]
  - VISUAL IMPAIRMENT [None]
